FAERS Safety Report 7301383-5 (Version None)
Quarter: 2011Q1

REPORT INFORMATION
  Report Type: 
  Country: None (occurrence: None)
  Receive Date: 20110218
  Receipt Date: 20110110
  Transmission Date: 20110831
  Serious: No
  Sender: FDA-Public Use
  Company Number: US-B.I. PHARMACEUTICALS,INC./RIDGEFIELD-2010-BP-14917BP

PATIENT
  Sex: Male

DRUGS (17)
  1. LOTREL [Concomitant]
     Route: 048
  2. MULTAQ [Concomitant]
     Dosage: 400 MG
     Route: 048
  3. AMBIEN [Concomitant]
     Indication: INSOMNIA
     Route: 048
  4. AMLODIPINE [Concomitant]
     Indication: MYOCARDIAL INFARCTION
     Route: 048
     Dates: start: 20010101
  5. RANEXA [Concomitant]
     Indication: CARDIAC DISORDER
     Dosage: 2000 MG
     Route: 048
     Dates: start: 20010101
  6. ZOLPIDEM [Concomitant]
     Indication: SLEEP DISORDER
     Route: 048
     Dates: start: 20080101
  7. ASPIRIN [Concomitant]
     Indication: CARDIAC DISORDER
     Dosage: 81 MG
     Route: 048
     Dates: start: 20010101
  8. METOPROLOL [Concomitant]
     Indication: MYOCARDIAL INFARCTION
     Dosage: 25 MG
     Route: 048
     Dates: start: 20010101
  9. DEXILANT [Concomitant]
     Indication: GASTROOESOPHAGEAL REFLUX DISEASE
  10. ISOSORBIDE DINITRATE [Concomitant]
     Indication: CARDIAC DISORDER
     Dosage: 30 MG
     Route: 048
     Dates: start: 20101101
  11. ZOCOR [Concomitant]
     Indication: BLOOD CHOLESTEROL INCREASED
     Dosage: 40 MG
     Route: 048
  12. DEXILANT [Concomitant]
     Indication: DYSPEPSIA
     Dosage: 60 MG
     Route: 048
  13. PRADAXA [Suspect]
     Indication: ATRIAL FIBRILLATION
     Dosage: 300 MG
     Route: 048
     Dates: start: 20101116, end: 20110110
  14. PRADAXA [Suspect]
     Dosage: 150 MG
     Route: 048
     Dates: start: 20110110
  15. DRONEDARONE [Concomitant]
     Indication: CARDIAC DISORDER
     Route: 048
     Dates: start: 20010101
  16. SIMVASTATIN [Concomitant]
     Indication: MYOCARDIAL INFARCTION
     Dosage: 40 MG
     Route: 048
     Dates: start: 20010101
  17. METOPROLOL [Concomitant]
     Indication: HYPERTENSION

REACTIONS (4)
  - IMMOBILE [None]
  - EPISTAXIS [None]
  - DIZZINESS [None]
  - NAUSEA [None]
